FAERS Safety Report 4884054-4 (Version None)
Quarter: 2006Q1

REPORT INFORMATION
  Report Type: 
  Country: None (occurrence: None)
  Receive Date: 20060118
  Receipt Date: 20051003
  Transmission Date: 20060701
  Serious: Yes (Hospitalization)
  Sender: FDA-Public Use
  Company Number: US-MERCK-0510USA02656

PATIENT
  Age: 61 Year
  Sex: Male
  Weight: 73 kg

DRUGS (8)
  1. VIOXX [Suspect]
     Indication: ARTHRITIS
     Route: 048
     Dates: start: 20031201, end: 20040930
  2. VIOXX [Suspect]
     Route: 048
  3. VALIUM [Concomitant]
     Route: 048
  4. LOPRESSOR [Concomitant]
     Route: 065
  5. LORTAB [Concomitant]
     Route: 065
  6. ISORDIL [Concomitant]
     Route: 065
  7. INSULIN, BIPHASIC ISOPHANE [INJECTION] [Concomitant]
     Route: 065
  8. INSULIN, BIPHASIC ISOPHANE [INJECTION] [Concomitant]
     Route: 065

REACTIONS (5)
  - ASTHENIA [None]
  - CHEST PAIN [None]
  - HYPOAESTHESIA [None]
  - ISCHAEMIC STROKE [None]
  - PANCREATITIS ACUTE [None]
